FAERS Safety Report 9070794 (Version 1)
Quarter: 2013Q1

REPORT INFORMATION
  Report Type: Spontaneous
  Country: US (occurrence: US)
  Receive Date: 20130206
  Receipt Date: 20130206
  Transmission Date: 20140127
  Serious: No
  Sender: FDA-Public Use
  Company Number: US-ALLERGAN-1205597US

PATIENT
  Age: 91 Year
  Sex: Male

DRUGS (4)
  1. RESTASIS? [Suspect]
     Indication: DRY EYE
     Dosage: 4 GTT, BID
     Route: 047
  2. LANTOPROST [Concomitant]
  3. AZOPT [Concomitant]
  4. REFRESH LIQUIGEL [Suspect]
     Indication: DRY EYE

REACTIONS (2)
  - Rhinorrhoea [Unknown]
  - Ocular hyperaemia [Not Recovered/Not Resolved]
